FAERS Safety Report 9371569 (Version 1)
Quarter: 2013Q2

REPORT INFORMATION
  Report Type: Spontaneous
  Country: US (occurrence: None)
  Receive Date: 20130626
  Receipt Date: 20130626
  Transmission Date: 20140414
  Serious: Yes (Hospitalization)
  Sender: FDA-Public Use
  Company Number: None

PATIENT
  Age: 33 Year
  Sex: Female
  Weight: 92.53 kg

DRUGS (3)
  1. DARUNAVIR [Suspect]
     Indication: HIV INFECTION
     Dosage: 800MG DAILY PO
     Route: 048
     Dates: start: 20130416, end: 20130522
  2. TRUVADA [Concomitant]
  3. RITONAVIR [Concomitant]

REACTIONS (5)
  - Chromaturia [None]
  - Local swelling [None]
  - Abdominal pain [None]
  - Nausea [None]
  - Autoimmune hepatitis [None]
